FAERS Safety Report 6012335-X (Version None)
Quarter: 2008Q4

REPORT INFORMATION
  Report Type: 
  Country: None (occurrence: None)
  Receive Date: 20081218
  Receipt Date: 20080822
  Transmission Date: 20090506
  Serious: No
  Sender: FDA-Public Use
  Company Number: US-ASTRAZENECA-2008UW16671

PATIENT
  Sex: Male

DRUGS (11)
  1. SYMBICORT [Suspect]
     Indication: CHRONIC OBSTRUCTIVE PULMONARY DISEASE
     Dosage: TWO PUFFS TWICE A DAY, 160/4.5
     Route: 055
     Dates: start: 20080801
  2. ELAVIL [Concomitant]
  3. ZYRTEC [Concomitant]
  4. DILTIAZEM [Concomitant]
  5. VASOTEC [Concomitant]
  6. ZETIA [Concomitant]
  7. LASIX [Concomitant]
  8. LEVOXYL [Concomitant]
  9. SINGULAIR [Concomitant]
  10. PRILOSEC [Concomitant]
  11. NEBULIZER [Concomitant]

REACTIONS (3)
  - COUGH [None]
  - PRODUCTIVE COUGH [None]
  - SPUTUM DISCOLOURED [None]
